FAERS Safety Report 16093042 (Version 1)
Quarter: 2019Q1

REPORT INFORMATION
  Report Type: Spontaneous
  Country: SE (occurrence: SE)
  Receive Date: 20190320
  Receipt Date: 20190320
  Transmission Date: 20190418
  Serious: Yes (Life-Threatening)
  Sender: FDA-Public Use
  Company Number: SE-ACCORD-113905

PATIENT
  Age: 49 Year
  Sex: Female

DRUGS (2)
  1. METHOTREXATE. [Suspect]
     Active Substance: METHOTREXATE
     Indication: JUVENILE IDIOPATHIC ARTHRITIS
     Dates: start: 20180802, end: 20181018
  2. NAPROXEN. [Suspect]
     Active Substance: NAPROXEN
     Indication: JUVENILE IDIOPATHIC ARTHRITIS
     Dates: start: 20141204, end: 20181010

REACTIONS (1)
  - Gastric ulcer haemorrhage [Recovered/Resolved]

NARRATIVE: CASE EVENT DATE: 20181018
